FAERS Safety Report 9933071 (Version 1)
Quarter: 2014Q1

REPORT INFORMATION
  Report Type: Report from Study
  Country: US (occurrence: US)
  Receive Date: 20140228
  Receipt Date: 20140228
  Transmission Date: 20141002
  Serious: No
  Sender: FDA-Public Use
  Company Number: US-ABBVIE-13P-163-1099016-00

PATIENT
  Age: 87 Year
  Sex: Male
  Weight: 79.45 kg

DRUGS (12)
  1. ANDROGEL [Suspect]
     Indication: BLOOD TESTOSTERONE DECREASED
     Dosage: 4 PUMPS DAILY
     Route: 061
     Dates: start: 20130530
  2. ASPIRIN [Concomitant]
     Indication: PRODUCT USED FOR UNKNOWN INDICATION
     Route: 048
  3. SIMVASTATIN [Concomitant]
     Indication: PRODUCT USED FOR UNKNOWN INDICATION
     Route: 048
  4. RANITIDINE [Concomitant]
     Indication: PRODUCT USED FOR UNKNOWN INDICATION
     Route: 048
  5. B100 COMPLEX [Concomitant]
     Indication: VITAMIN SUPPLEMENTATION
     Route: 048
  6. CALCIUM 600 PLUS VITAMIN D [Concomitant]
     Indication: PRODUCT USED FOR UNKNOWN INDICATION
     Route: 048
  7. LIMBRON [Concomitant]
     Indication: NEUROPATHY PERIPHERAL
     Route: 048
  8. GLUCOSAMINE CHONDROITIN [Concomitant]
     Indication: PRODUCT USED FOR UNKNOWN INDICATION
     Route: 048
  9. FISH OIL - OMEGA 3, 6 ,9 [Concomitant]
     Indication: SUPPLEMENTATION THERAPY
     Route: 048
  10. CITALOPRAM [Concomitant]
     Indication: PRODUCT USED FOR UNKNOWN INDICATION
     Route: 048
  11. CHERRY JUICE [Concomitant]
     Indication: SUPPLEMENTATION THERAPY
     Dosage: DAILY
  12. CHERRY JUICE [Concomitant]
     Indication: ARTHROPATHY

REACTIONS (1)
  - Vertigo [Recovering/Resolving]
